FAERS Safety Report 7378270-X (Version None)
Quarter: 2011Q1

REPORT INFORMATION
  Report Type: 
  Country: None (occurrence: None)
  Receive Date: 20110328
  Receipt Date: 20110324
  Transmission Date: 20110831
  Serious: Yes (Other)
  Sender: FDA-Public Use
  Company Number: GB-ROXANE LABORATORIES, INC.-2011-RO-00406RO

PATIENT
  Age: 19 Month
  Sex: Male
  Weight: 5 kg

DRUGS (4)
  1. LIDOCAINE [Suspect]
     Indication: ANAESTHESIA
     Dosage: 1.5 ML
  2. PROPRANOLOL [Suspect]
     Indication: FALLOT'S TETRALOGY
  3. SEVOFLURANE [Suspect]
     Indication: INDUCTION OF ANAESTHESIA
  4. VOLPLEX [Suspect]

REACTIONS (1)
  - HYPOGLYCAEMIA [None]
